FAERS Safety Report 4627433-2 (Version None)
Quarter: 2005Q2

REPORT INFORMATION
  Report Type: 
  Country: None (occurrence: None)
  Receive Date: 20050405
  Receipt Date: 20030627
  Transmission Date: 20051028
  Serious: Yes (Hospitalization, Disabling)
  Sender: FDA-Public Use
  Company Number: US-MERCK-0306USA03352

PATIENT
  Age: 47 Year
  Sex: Male
  Weight: 82 kg

DRUGS (13)
  1. VIOXX [Suspect]
     Indication: PAIN IN EXTREMITY
     Route: 048
     Dates: start: 20000801, end: 20010616
  2. VIOXX [Suspect]
     Indication: BACK PAIN
     Route: 048
     Dates: start: 20000801, end: 20010616
  3. MONOPRIL [Concomitant]
     Route: 065
     Dates: start: 20010101
  4. METOPROLOL [Concomitant]
     Route: 065
     Dates: start: 20010601, end: 20010701
  5. ASPIRIN [Suspect]
     Route: 065
     Dates: start: 20010601
  6. PLAVIX [Suspect]
     Route: 065
     Dates: start: 20010601, end: 20020701
  7. LIPITOR [Concomitant]
     Route: 065
     Dates: start: 20010601
  8. NIACIN [Concomitant]
     Route: 065
     Dates: start: 20020101, end: 20030901
  9. ANALGESIC OR ANESTHETIC (UNSPECIFIED) [Concomitant]
     Route: 065
     Dates: start: 19980101, end: 20010101
  10. ZOLOFT [Concomitant]
     Route: 065
     Dates: start: 20010601, end: 20010701
  11. VICODIN [Concomitant]
     Route: 065
     Dates: start: 20000713, end: 20010616
  12. CELEBREX [Concomitant]
     Route: 065
  13. HEPARIN [Suspect]
     Indication: MYOCARDIAL INFARCTION
     Route: 042
     Dates: start: 20010617

REACTIONS (24)
  - ADJUSTMENT DISORDER [None]
  - ANGINA PECTORIS [None]
  - ANGINA UNSTABLE [None]
  - ANXIETY [None]
  - ASPIRATION [None]
  - ATHEROSCLEROSIS [None]
  - BLOOD CHOLESTEROL INCREASED [None]
  - BLOOD TRIGLYCERIDES INCREASED [None]
  - CARDIAC ARREST [None]
  - CHEST PAIN [None]
  - CORONARY ARTERY ATHEROSCLEROSIS [None]
  - CORONARY ARTERY DISEASE [None]
  - DEPRESSION [None]
  - DYSTHYMIC DISORDER [None]
  - EMOTIONAL DISTRESS [None]
  - GASTRITIS [None]
  - HAEMATOMA [None]
  - HYPERTENSION [None]
  - INTERVERTEBRAL DISC PROTRUSION [None]
  - LETHARGY [None]
  - LUMBAR RADICULOPATHY [None]
  - MYOCARDIAL INFARCTION [None]
  - UPPER GASTROINTESTINAL HAEMORRHAGE [None]
  - VENTRICULAR FIBRILLATION [None]
